FAERS Safety Report 10767275 (Version 1)
Quarter: 2015Q1

REPORT INFORMATION
  Report Type: Spontaneous
  Country: US (occurrence: US)
  Receive Date: 20150205
  Receipt Date: 20150205
  Transmission Date: 20150721
  Serious: No
  Sender: FDA-Public Use
  Company Number: 163-00000-14091293

PATIENT

DRUGS (2)
  1. ALKERAN [Suspect]
     Active Substance: MELPHALAN
     Indication: PLASMA CELL MYELOMA
     Dosage: 2 MG STRENGTH, 10 MG UNKNOWN FREQUENCY
     Route: 048
     Dates: start: 20110620, end: 20120529
  2. PREDNISONE. [Suspect]
     Active Substance: PREDNISONE
     Indication: PLASMA CELL MYELOMA
     Route: 048
     Dates: start: 20110620, end: 20120529

REACTIONS (1)
  - Headache [Unknown]

NARRATIVE: CASE EVENT DATE: 20111210
